FAERS Safety Report 5727864-3 (Version None)
Quarter: 2008Q2

REPORT INFORMATION
  Report Type: 
  Country: None (occurrence: None)
  Receive Date: 20080505
  Receipt Date: 20080425
  Transmission Date: 20081010
  Serious: Yes (Other)
  Sender: FDA-Public Use
  Company Number: JP-ABBOTT-08P-087-0448035-00

PATIENT
  Age: 66 Year
  Sex: Female

DRUGS (7)
  1. CEFZON [Suspect]
     Indication: PROPHYLAXIS
     Route: 048
     Dates: start: 20080305, end: 20080306
  2. CEFZON [Suspect]
     Indication: LYMPH GLAND INFECTION
  3. THYROID TAB [Concomitant]
     Indication: DRUG USE FOR UNKNOWN INDICATION
  4. CARBOCISTEINE [Concomitant]
     Indication: DRUG USE FOR UNKNOWN INDICATION
  5. REBAMIPIDE [Concomitant]
     Indication: DRUG USE FOR UNKNOWN INDICATION
  6. BROTIZOLAM [Concomitant]
     Indication: DRUG USE FOR UNKNOWN INDICATION
  7. BECLOMETHASONE DIPROPIONATE [Concomitant]
     Indication: DRUG USE FOR UNKNOWN INDICATION

REACTIONS (3)
  - BONE MARROW FAILURE [None]
  - GENERALISED OEDEMA [None]
  - LEUKOCYTOCLASTIC VASCULITIS [None]
